FAERS Safety Report 18897377 (Version 1)
Quarter: 2021Q1

REPORT INFORMATION
  Report Type: Spontaneous
  Country: CN (occurrence: CN)
  Receive Date: 20210215
  Receipt Date: 20210215
  Transmission Date: 20210420
  Serious: Yes (Hospitalization, Other)
  Sender: FDA-Public Use
  Company Number: CN-BAXTER-2021BAX002722

PATIENT
  Age: 64 Year
  Sex: Female
  Weight: 65 kg

DRUGS (7)
  1. ENDOXAN [Suspect]
     Active Substance: CYCLOPHOSPHAMIDE
     Indication: METASTASES TO BONE
     Dosage: CYCLOPHOSPHAMIDE  0.8G + SODIUM CHLORIDE 500ML, FOR 4 HOURS
     Route: 041
     Dates: start: 20210108, end: 20210108
  2. PIRARUBICIN HYDROCHLORIDE [Suspect]
     Active Substance: PIRARUBICIN HYDROCHLORIDE
     Indication: METASTASES TO LYMPH NODES
     Dosage: PIRARUBICIN HYDROCHLORIDE 60 MG + 0.9% SODIUM CHLORIDE  500ML, FOR 4 HOURS
     Route: 041
     Dates: start: 20210108, end: 20210108
  3. 0.9% SODIUM CHLORIDE INJECTION [Suspect]
     Active Substance: SODIUM CHLORIDE
     Indication: MEDICATION DILUTION
     Dosage: CYCLOPHOSPHAMIDE  0.8G + SODIUM CHLORIDE INJECTION 500ML, FOR 4 HOUS
     Route: 041
     Dates: start: 20210108, end: 20210108
  4. DOCETAXEL. [Suspect]
     Active Substance: DOCETAXEL
     Indication: BREAST CANCER
     Dosage: DOCETAXEL 120 MG + 0.9% SODIUM CHLORIDE 250ML, FOR 2 HOURS
     Route: 041
     Dates: start: 20210108, end: 20210108
  5. 0.9% SODIUM CHLORIDE INJECTION [Suspect]
     Active Substance: SODIUM CHLORIDE
     Dosage: DOCETAXEL 120 MG + 0.9% SODIUM CHLORIDE 250ML, FOR 2 HOURS
     Route: 041
     Dates: start: 20210108, end: 20210108
  6. 0.9% SODIUM CHLORIDE INJECTION [Suspect]
     Active Substance: SODIUM CHLORIDE
     Dosage: PIRARUBICIN HYDROCHLORIDE 60 MG + 0.9% SODIUM CHLORIDE  500ML, FOR 4 HOURS
     Route: 041
     Dates: start: 20210108, end: 20210108
  7. RECOMBINANT HUMAN GRANULOCYTE COLONY?STIMULATING FACTOR [Concomitant]
     Active Substance: GRANULOCYTE COLONY-STIMULATING FACTOR NOS
     Indication: PROPHYLAXIS
     Route: 058
     Dates: start: 202101

REACTIONS (2)
  - Myelosuppression [Recovering/Resolving]
  - Decreased appetite [Unknown]

NARRATIVE: CASE EVENT DATE: 20210111
